FAERS Safety Report 8063891-1 (Version None)
Quarter: 2012Q1

REPORT INFORMATION
  Report Type: 
  Country: None (occurrence: None)
  Receive Date: 20120123
  Receipt Date: 20120113
  Transmission Date: 20120608
  Serious: Yes (Life-Threatening, Hospitalization)
  Sender: FDA-Public Use
  Company Number: CA-UCBSA-037873

PATIENT
  Age: 76 Year
  Sex: Female
  Weight: 68.038 kg

DRUGS (6)
  1. ASPIRIN [Suspect]
     Route: 048
  2. HYDROCHLOROTHIAZIDE [Concomitant]
     Indication: HYPERTENSION
     Route: 048
  3. RABEPRAZOLE SODIUM [Concomitant]
     Route: 048
  4. PREDNISONE [Concomitant]
     Indication: RHEUMATOID ARTHRITIS
     Route: 048
     Dates: start: 20110110
  5. VASOTEC [Concomitant]
     Indication: HYPERTENSION
     Route: 048
  6. CIMZIA [Suspect]
     Indication: RHEUMATOID ARTHRITIS
     Route: 058
     Dates: start: 20110420, end: 20110101

REACTIONS (6)
  - DYSPEPSIA [None]
  - GASTROOESOPHAGEAL REFLUX DISEASE [None]
  - CARDIAC FAILURE CONGESTIVE [None]
  - OEDEMA PERIPHERAL [None]
  - MYOCARDIAL INFARCTION [None]
  - PNEUMONIA [None]
